FAERS Safety Report 8906551 (Version 1)
Quarter: 2012Q4

REPORT INFORMATION
  Report Type: 
  Country: US (occurrence: US)
  Receive Date: 20121114
  Receipt Date: 20121114
  Transmission Date: 20130627
  Serious: No
  Sender: FDA-Public Use
  Company Number: US-009507513-1211USA005215

PATIENT
  Sex: Male

DRUGS (1)
  1. SINGULAIR [Suspect]
     Indication: HYPERSENSITIVITY
     Dosage: 10 mg, qd
     Route: 048
     Dates: end: 201211

REACTIONS (3)
  - Thrombocytopenia [Not Recovered/Not Resolved]
  - Inappropriate schedule of drug administration [Unknown]
  - Contusion [Unknown]
